FAERS Safety Report 6924302-X (Version None)
Quarter: 2010Q3

REPORT INFORMATION
  Report Type: 
  Country: None (occurrence: None)
  Receive Date: 20100811
  Receipt Date: 20100811
  Transmission Date: 20110219
  Serious: Yes (Other)
  Sender: FDA-Public Use
  Company Number: None

PATIENT
  Sex: Female
  Weight: 56.6996 kg

DRUGS (1)
  1. LOESTRIN 24 FE [Suspect]
     Indication: MENORRHAGIA
     Dates: start: 20100610, end: 20100810

REACTIONS (1)
  - MUSCLE SPASMS [None]
